FAERS Safety Report 8114996-8 (Version None)
Quarter: 2012Q1

REPORT INFORMATION
  Report Type: 
  Country: None (occurrence: None)
  Receive Date: 20120206
  Receipt Date: 20120127
  Transmission Date: 20120608
  Serious: Yes (Other)
  Sender: FDA-Public Use
  Company Number: ES-BRISTOL-MYERS SQUIBB COMPANY-16357311

PATIENT
  Sex: Male

DRUGS (2)
  1. ORENCIA [Suspect]
     Dosage: FRM 2004 TO 2008 ORENCIA TREATMENT CONTINUED. CP
     Route: 042
     Dates: start: 20030101
  2. LEFLUNOMIDE [Suspect]
     Dates: start: 20030101

REACTIONS (3)
  - FALL [None]
  - PNEUMONIA [None]
  - FOREARM FRACTURE [None]
